FAERS Safety Report 15447183 (Version 2)
Quarter: 2018Q4

REPORT INFORMATION
  Report Type: Spontaneous
  Country: GB (occurrence: GB)
  Receive Date: 20180928
  Receipt Date: 20181009
  Transmission Date: 20190204
  Serious: Yes (Hospitalization)
  Sender: FDA-Public Use
  Company Number: GB-SA-2018SA267623

PATIENT
  Age: 68 Year
  Sex: Male

DRUGS (2)
  1. BCG FOR IMMUNOTHERAPY [Suspect]
     Active Substance: BACILLUS CALMETTE-GUERIN ANTIGEN, UNSPECIFIED SUBSTRAIN
     Indication: BLADDER CANCER
     Dosage: UNK
     Route: 043
  2. BCG FOR IMMUNOTHERAPY [Suspect]
     Active Substance: BACILLUS CALMETTE-GUERIN ANTIGEN, UNSPECIFIED SUBSTRAIN
     Dosage: UNK
     Route: 043

REACTIONS (20)
  - Demyelinating polyneuropathy [Recovered/Resolved]
  - Myalgia [Recovering/Resolving]
  - Gait disturbance [Unknown]
  - Areflexia [Recovered/Resolved]
  - Hyperhidrosis [Unknown]
  - Haematuria [Recovering/Resolving]
  - Pyrexia [Recovering/Resolving]
  - Sensory loss [Recovered/Resolved]
  - Dyspnoea [Recovering/Resolving]
  - Loss of proprioception [Unknown]
  - Hepatomegaly [Unknown]
  - Abdominal pain upper [Unknown]
  - Sputum increased [Recovering/Resolving]
  - Disseminated Bacillus Calmette-Guerin infection [Recovering/Resolving]
  - Productive cough [Recovering/Resolving]
  - Guillain-Barre syndrome [Unknown]
  - Orthostatic hypotension [Unknown]
  - Chills [Unknown]
  - Decreased appetite [Unknown]
  - Neuralgia [Recovered/Resolved]
